FAERS Safety Report 5330084-8 (Version None)
Quarter: 2007Q2

REPORT INFORMATION
  Report Type: 
  Country: None (occurrence: None)
  Receive Date: 20070515
  Receipt Date: 20070502
  Transmission Date: 20071010
  Serious: Yes (Life-Threatening)
  Sender: FDA-Public Use
  Company Number: 2007-01243

PATIENT
  Age: 74 Year
  Sex: Male
  Weight: 75 kg

DRUGS (4)
  1. VELCADE [Suspect]
     Indication: MULTIPLE MYELOMA
     Dosage: 9.60 MG, INTRAVENOUS
     Route: 042
     Dates: start: 20051010, end: 20060113
  2. ALKERAN [Suspect]
     Indication: MULTIPLE MYELOMA
     Dosage: 10.00 MG, INTRAVENOUS
     Route: 042
     Dates: start: 20040401, end: 20040801
  3. CYCLOPHOSPHAMIDE [Suspect]
     Indication: MULTIPLE MYELOMA
     Dates: start: 20060401, end: 20060601
  4. THALIDOMIDE [Suspect]
     Indication: MULTIPLE MYELOMA
     Dates: start: 20041101, end: 20050101

REACTIONS (7)
  - ACUTE LEUKAEMIA [None]
  - CHROMOSOME ANALYSIS ABNORMAL [None]
  - CONDITION AGGRAVATED [None]
  - DRUG TOXICITY [None]
  - MULTIPLE MYELOMA [None]
  - MYELOCYTOSIS [None]
  - NEUROTOXICITY [None]
